FAERS Safety Report 6760905-3 (Version None)
Quarter: 2010Q2

REPORT INFORMATION
  Report Type: 
  Country: None (occurrence: None)
  Receive Date: 20100608
  Receipt Date: 20100603
  Transmission Date: 20101027
  Serious: Yes (Other)
  Sender: FDA-Public Use
  Company Number: US-AMGEN-KDL410734

PATIENT
  Sex: Male
  Weight: 103.5 kg

DRUGS (6)
  1. NPLATE [Suspect]
     Indication: IDIOPATHIC THROMBOCYTOPENIC PURPURA
     Dates: start: 20100406
  2. PREDNISONE [Concomitant]
  3. LACTULOSE [Concomitant]
  4. INDERAL [Concomitant]
  5. ALDACTONE [Concomitant]
  6. LASIX [Concomitant]

REACTIONS (4)
  - BLISTER [None]
  - FEELING ABNORMAL [None]
  - OEDEMA PERIPHERAL [None]
  - PLATELET COUNT INCREASED [None]
